FAERS Safety Report 5918902-3 (Version None)
Quarter: 2008Q3

REPORT INFORMATION
  Report Type: 
  Country: None (occurrence: None)
  Receive Date: 20080909
  Receipt Date: 20070622
  Transmission Date: 20090109
  Serious: Yes (Other)
  Sender: FDA-Public Use
  Company Number: 163-20785-07061251

PATIENT
  Age: 61 Year
  Sex: Male

DRUGS (3)
  1. THALOMID [Suspect]
     Indication: MULTIPLE MYELOMA
     Dosage: 100MG - 200MG, DAILY, ORAL ; 100MG - 50MG, DAILY, ORAL ; 100MG - 200MG, DAILY, ORAL
     Route: 048
     Dates: start: 20040825, end: 20041001
  2. THALOMID [Suspect]
     Indication: MULTIPLE MYELOMA
     Dosage: 100MG - 200MG, DAILY, ORAL ; 100MG - 50MG, DAILY, ORAL ; 100MG - 200MG, DAILY, ORAL
     Route: 048
     Dates: start: 20050421, end: 20060201
  3. THALOMID [Suspect]
     Indication: MULTIPLE MYELOMA
     Dosage: 100MG - 200MG, DAILY, ORAL ; 100MG - 50MG, DAILY, ORAL ; 100MG - 200MG, DAILY, ORAL
     Route: 048
     Dates: start: 20060308, end: 20060801

REACTIONS (1)
  - SYNCOPE [None]
